FAERS Safety Report 7829642-8 (Version None)
Quarter: 2011Q4

REPORT INFORMATION
  Report Type: 
  Country: None (occurrence: None)
  Receive Date: 20111021
  Receipt Date: 20111012
  Transmission Date: 20120403
  Serious: Yes (Hospitalization)
  Sender: FDA-Public Use
  Company Number: US-BIOGENIDEC-2011BI031826

PATIENT
  Age: 54 Year
  Sex: Female

DRUGS (2)
  1. XENAZINE [Concomitant]
     Indication: HUNTINGTON'S DISEASE
  2. TYSABRI [Suspect]
     Indication: MULTIPLE SCLEROSIS
     Route: 042
     Dates: start: 20061101

REACTIONS (2)
  - CYSTITIS [None]
  - COGNITIVE DISORDER [None]
